FAERS Safety Report 7465707-0 (Version None)
Quarter: 2011Q2

REPORT INFORMATION
  Report Type: 
  Country: None (occurrence: None)
  Receive Date: 20110509
  Receipt Date: 20110418
  Transmission Date: 20111010
  Serious: Yes (Hospitalization)
  Sender: FDA-Public Use
  Company Number: B0715008A

PATIENT
  Age: 28 Year
  Sex: Female

DRUGS (2)
  1. LIMAS [Concomitant]
     Indication: BIPOLAR II DISORDER
     Dosage: 800MG PER DAY
     Route: 048
     Dates: start: 20110424
  2. LAMICTAL [Suspect]
     Indication: PRODUCT USED FOR UNKNOWN INDICATION
     Dosage: 50MG PER DAY
     Route: 048
     Dates: start: 20110303, end: 20110414

REACTIONS (4)
  - RASH [None]
  - VIRAL INFECTION [None]
  - ERYTHEMA [None]
  - BODY TEMPERATURE INCREASED [None]
